FAERS Safety Report 9314153 (Version 1)
Quarter: 2013Q2

REPORT INFORMATION
  Report Type: Spontaneous
  Country: US (occurrence: US)
  Receive Date: 20130529
  Receipt Date: 20130529
  Transmission Date: 20140414
  Serious: No
  Sender: FDA-Public Use
  Company Number: US-009507513-1305USA014102

PATIENT
  Age: 19 Year
  Sex: Female
  Weight: 49.43 kg

DRUGS (2)
  1. IMPLANON [Suspect]
     Dosage: UNK
     Route: 059
     Dates: start: 201005, end: 20130228
  2. NEXPLANON [Suspect]
     Indication: CONTRACEPTION
     Dosage: UNK
     Route: 059
     Dates: start: 20130228

REACTIONS (2)
  - Haemorrhage [Unknown]
  - Vaginal haemorrhage [Not Recovered/Not Resolved]
